FAERS Safety Report 15944240 (Version 1)
Quarter: 2019Q1

REPORT INFORMATION
  Report Type: Spontaneous
  Country: US (occurrence: US)
  Receive Date: 20190211
  Receipt Date: 20190211
  Transmission Date: 20190417
  Serious: Yes (Other)
  Sender: FDA-Public Use
  Company Number: US-ROCHE-2258443

PATIENT
  Sex: Female
  Weight: 71.73 kg

DRUGS (3)
  1. OCREVUS [Suspect]
     Active Substance: OCRELIZUMAB
     Dosage: FULL DOSE
     Route: 065
     Dates: start: 20181116
  2. OCREVUS [Suspect]
     Active Substance: OCRELIZUMAB
     Indication: RELAPSING-REMITTING MULTIPLE SCLEROSIS
     Dosage: HALF DOSE
     Route: 065
     Dates: start: 20180528
  3. OCREVUS [Suspect]
     Active Substance: OCRELIZUMAB
     Dosage: SUSEQUENT DOSE
     Route: 065
     Dates: start: 20180608

REACTIONS (1)
  - Malignant melanoma [Not Recovered/Not Resolved]
